FAERS Safety Report 6263522-7 (Version None)
Quarter: 2009Q3

REPORT INFORMATION
  Report Type: 
  Country: None (occurrence: None)
  Receive Date: 20090710
  Receipt Date: 20090403
  Transmission Date: 20100115
  Serious: No
  Sender: FDA-Public Use
  Company Number: A0777120A

PATIENT
  Age: 66 Year
  Sex: Female

DRUGS (7)
  1. TYKERB [Suspect]
     Indication: BREAST CANCER
     Dosage: 5TAB PER DAY
     Route: 048
     Dates: start: 20090329
  2. XELODA [Suspect]
     Dosage: 3TAB TWICE PER DAY
     Dates: start: 20090329
  3. NAUSEA MEDICATION (UNKNOWN) [Concomitant]
  4. HEART MEDICATION [Concomitant]
  5. MORPHINE [Concomitant]
  6. CALCIUM [Concomitant]
  7. VITAMIN D [Concomitant]

REACTIONS (1)
  - NAUSEA [None]
